FAERS Safety Report 9649254 (Version 3)
Quarter: 2014Q3

REPORT INFORMATION
  Report Type: Spontaneous
  Country: US (occurrence: US)
  Receive Date: 20131028
  Receipt Date: 20140807
  Transmission Date: 20150326
  Serious: Yes (Hospitalization)
  Sender: FDA-Public Use
  Company Number: US-GLAXOSMITHKLINE-A1047005A

PATIENT
  Age: 76 Year
  Sex: Female

DRUGS (1)
  1. VOTRIENT [Suspect]
     Active Substance: PAZOPANIB HYDROCHLORIDE
     Indication: RENAL CANCER
     Dosage: 800MG PER DAY
     Route: 065

REACTIONS (6)
  - Staphylococcal infection [Unknown]
  - Nausea [Unknown]
  - Limb operation [Unknown]
  - Nasopharyngitis [Unknown]
  - Hiccups [Unknown]
  - Malaise [Unknown]
